FAERS Safety Report 8016366-X (Version None)
Quarter: 2011Q4

REPORT INFORMATION
  Report Type: 
  Country: None (occurrence: None)
  Receive Date: 20111230
  Receipt Date: 20111216
  Transmission Date: 20120403
  Serious: Yes (Hospitalization, Other)
  Sender: FDA-Public Use
  Company Number: DE-CELGENEUS-062-50794-11010060

PATIENT
  Age: 70 Year
  Sex: Female
  Weight: 58 kg

DRUGS (10)
  1. VIDAZA [Suspect]
     Route: 058
     Dates: start: 20100830
  2. ANTITHROMBOTIC AGENTS [Concomitant]
     Indication: THROMBOSIS PROPHYLAXIS
     Route: 065
  3. VIDAZA [Suspect]
     Dosage: 120 MILLIGRAM
     Route: 058
     Dates: start: 20101122, end: 20101130
  4. ONDANSETRON [Concomitant]
     Dosage: 16 MILLIGRAM
     Route: 065
  5. VIDAZA [Suspect]
     Dosage: 120 MILLIGRAM
     Route: 058
     Dates: start: 20101227, end: 20101230
  6. LOVASTATIN [Concomitant]
     Dosage: 20 MILLIGRAM
     Route: 065
  7. BISOPROLOL [Concomitant]
     Dosage: 10 MILLIGRAM
     Route: 065
  8. CYCLOKAPRON [Concomitant]
     Dosage: 1000 MILLIGRAM
     Route: 065
  9. NITROFURANTOIN [Concomitant]
     Dosage: 200 MILLIGRAM
     Route: 065
  10. PANTOPRAZOLE SODIUM [Concomitant]
     Dosage: 40 MILLIGRAM
     Route: 065

REACTIONS (2)
  - HAEMORRHOIDAL HAEMORRHAGE [None]
  - CYSTITIS HAEMORRHAGIC [None]
